FAERS Safety Report 5230966-1 (Version None)
Quarter: 2007Q1

REPORT INFORMATION
  Report Type: 
  Country: None (occurrence: None)
  Receive Date: 20070205
  Receipt Date: 20070205
  Transmission Date: 20070707
  Serious: No
  Sender: FDA-Public Use
  Company Number: None

PATIENT
  Age: 55 Year
  Sex: Female

DRUGS (1)
  1. BENZOCAINE/TETRACAINE [Suspect]
     Dosage: 1 SPRAY ONCE OTHER
     Route: 050
     Dates: start: 20061129, end: 20061129

REACTIONS (1)
  - METHAEMOGLOBINAEMIA [None]
